FAERS Safety Report 5391711-2 (Version None)
Quarter: 2007Q3

REPORT INFORMATION
  Report Type: 
  Country: None (occurrence: None)
  Receive Date: 20070719
  Receipt Date: 20070712
  Transmission Date: 20080115
  Serious: Yes (Life-Threatening, Hospitalization)
  Sender: FDA-Public Use
  Company Number: JP-MERCK-0707USA02634

PATIENT
  Age: 78 Year
  Sex: Female

DRUGS (17)
  1. COZAAR [Suspect]
     Indication: HYPERTENSION
     Route: 048
     Dates: end: 20070708
  2. AMARYL [Concomitant]
     Indication: DIABETES MELLITUS
     Route: 048
     Dates: end: 20070707
  3. BASEN [Concomitant]
     Indication: DIABETES MELLITUS
     Route: 048
     Dates: end: 20070711
  4. MELBIN [Concomitant]
     Indication: DIABETES MELLITUS
     Route: 048
     Dates: end: 20070707
  5. LASIX [Concomitant]
     Indication: HYPERTENSION
     Route: 048
  6. ALDACTONE [Concomitant]
     Route: 048
  7. AMLODIPINE [Concomitant]
     Route: 048
  8. DEPAS [Concomitant]
     Route: 048
  9. GUANABENZ ACETATE [Concomitant]
     Route: 048
  10. TICLOPIDINE HYDROCHLORIDE [Concomitant]
     Route: 048
  11. HALCION [Concomitant]
     Route: 048
  12. LEVOGLUTAMIDE AND SODIUM GUALENATE [Concomitant]
     Route: 048
  13. MAGNESIUM OXIDE [Concomitant]
     Route: 048
  14. LOXONIN [Concomitant]
     Route: 048
     Dates: end: 20070701
  15. MUCOSTA [Concomitant]
     Route: 048
  16. MYONAL [Concomitant]
     Route: 048
  17. PRODIF [Concomitant]
     Route: 042

REACTIONS (1)
  - HYPOGLYCAEMIC COMA [None]
